FAERS Safety Report 5364823-7 (Version None)
Quarter: 2007Q2

REPORT INFORMATION
  Report Type: 
  Country: None (occurrence: None)
  Receive Date: 20070530
  Receipt Date: 20070123
  Transmission Date: 20071010
  Serious: No
  Sender: FDA-Public Use
  Company Number: 2007PV028871

PATIENT
  Age: 39 Year
  Sex: Female

DRUGS (4)
  1. BYETTA [Suspect]
     Indication: DIABETES MELLITUS NON-INSULIN-DEPENDENT
     Dosage: 5 MCG; BID; SC
     Route: 058
     Dates: start: 20061001
  2. LANTUS [Concomitant]
  3. METFORMIN HCL [Concomitant]
  4. GLIMEPIRIDE [Concomitant]

REACTIONS (6)
  - BLOOD GLUCOSE INCREASED [None]
  - CHILLS [None]
  - DRUG EFFECT DECREASED [None]
  - INFLUENZA [None]
  - INFUSION SITE URTICARIA [None]
  - PYREXIA [None]
